FAERS Safety Report 4893489-5 (Version None)
Quarter: 2006Q1

REPORT INFORMATION
  Report Type: 
  Country: None (occurrence: None)
  Receive Date: 20060127
  Receipt Date: 20050822
  Transmission Date: 20060701
  Serious: No
  Sender: FDA-Public Use
  Company Number: US-BRISTOL-MYERS SQUIBB COMPANY-13085527

PATIENT
  Age: 35 Year
  Sex: Female
  Weight: 61 kg

DRUGS (3)
  1. KENALOG [Suspect]
     Indication: ASTHMA
     Dates: start: 20050101
  2. ALBUTEROL [Concomitant]
     Route: 055
  3. DEPO-PROVERA [Concomitant]
     Indication: CONTRACEPTION

REACTIONS (3)
  - INJECTION SITE PAIN [None]
  - MUSCLE ATROPHY [None]
  - PAIN [None]
